FAERS Safety Report 21293118 (Version 1)
Quarter: 2022Q3

REPORT INFORMATION
  Report Type: Report from Study
  Country: ES (occurrence: None)
  Receive Date: 20220905
  Receipt Date: 20220905
  Transmission Date: 20221027
  Serious: Yes (Death, Hospitalization)
  Sender: FDA-Public Use
  Company Number: ES-ROCHE-3165544

PATIENT
  Sex: Male

DRUGS (20)
  1. SACITUZUMAB GOVITECAN [Suspect]
     Active Substance: SACITUZUMAB GOVITECAN
     Indication: Non-small cell lung cancer
     Route: 042
     Dates: start: 20220722, end: 20220722
  2. SACITUZUMAB GOVITECAN [Suspect]
     Active Substance: SACITUZUMAB GOVITECAN
     Route: 042
     Dates: start: 20220729, end: 20220729
  3. ATEZOLIZUMAB [Suspect]
     Active Substance: ATEZOLIZUMAB
     Indication: Non-small cell lung cancer
     Route: 065
     Dates: start: 202112, end: 202204
  4. PREGABALIN [Concomitant]
     Active Substance: PREGABALIN
  5. ENOXAPARIN [Concomitant]
     Active Substance: ENOXAPARIN
  6. VILANTEROL TRIFENATATE [Concomitant]
     Active Substance: VILANTEROL TRIFENATATE
     Dates: start: 202107
  7. FLUTICASONE FUROATE [Concomitant]
     Active Substance: FLUTICASONE FUROATE
     Dates: start: 202107
  8. CODEINE [Concomitant]
     Active Substance: CODEINE
  9. MORPHINE [Concomitant]
     Active Substance: MORPHINE
  10. MAGNESIUM [Concomitant]
     Active Substance: MAGNESIUM
     Dates: start: 202107
  11. OMEPRAZOLE [Concomitant]
     Active Substance: OMEPRAZOLE
  12. CHOLECALCIFEROL [Concomitant]
     Active Substance: CHOLECALCIFEROL
     Dates: start: 2021
  13. PREDNISONE [Concomitant]
     Active Substance: PREDNISONE
  14. DEXKETOPROFEN [Concomitant]
     Active Substance: DEXKETOPROFEN
  15. ACETAMINOPHEN [Concomitant]
     Active Substance: ACETAMINOPHEN
  16. HYDROCORTISONE [Concomitant]
     Active Substance: HYDROCORTISONE
     Route: 065
     Dates: start: 20220805, end: 20220809
  17. PHYTONADIONE [Concomitant]
     Active Substance: PHYTONADIONE
     Route: 065
     Dates: start: 20220805, end: 20220805
  18. PANTOPRAZOLE [Concomitant]
     Active Substance: PANTOPRAZOLE
     Route: 065
     Dates: start: 20220805, end: 20220810
  19. TINZAPARIN [Concomitant]
     Active Substance: TINZAPARIN
     Route: 065
     Dates: start: 20220805, end: 20220809
  20. DIAZEPAM [Concomitant]
     Active Substance: DIAZEPAM

REACTIONS (1)
  - Neutropenic colitis [Fatal]

NARRATIVE: CASE EVENT DATE: 20220805
